FAERS Safety Report 9688174 (Version 3)
Quarter: 2013Q4

REPORT INFORMATION
  Report Type: Spontaneous
  Country: US (occurrence: US)
  Receive Date: 20131114
  Receipt Date: 20131227
  Transmission Date: 20140711
  Serious: Yes (Other)
  Sender: FDA-Public Use
  Company Number: US-SA-2013SA115543

PATIENT
  Age: 62 Year
  Sex: Female

DRUGS (3)
  1. SELENIUM SULFIDE [Suspect]
     Indication: DRY SKIN
     Route: 065
     Dates: start: 20131103
  2. XANAX [Concomitant]
  3. VICODIN [Concomitant]

REACTIONS (11)
  - Chemical injury [Unknown]
  - Swelling face [Unknown]
  - Condition aggravated [Unknown]
  - Erythema [Recovered/Resolved]
  - Drug hypersensitivity [Recovered/Resolved]
  - Eye swelling [Recovered/Resolved]
  - Visual impairment [Unknown]
  - Erythema [Recovered/Resolved]
  - Local swelling [Recovered/Resolved]
  - Blood pressure increased [Unknown]
  - Insomnia [Unknown]
